FAERS Safety Report 9017696 (Version 2)
Quarter: 2013Q1

REPORT INFORMATION
  Report Type: Spontaneous
  Country: US (occurrence: US)
  Receive Date: 20130118
  Receipt Date: 20130129
  Transmission Date: 20140127
  Serious: No
  Sender: FDA-Public Use
  Company Number: US-009507513-1301USA004225

PATIENT
  Age: 70 None
  Sex: Female

DRUGS (7)
  1. DULERA [Suspect]
     Indication: CHRONIC OBSTRUCTIVE PULMONARY DISEASE
     Dosage: 100/5MCG, 2 PUFFS/TWICE DAILY
     Route: 055
     Dates: start: 20130104, end: 20130106
  2. DULERA [Suspect]
     Indication: ASTHMA
  3. LEVOFLOXACIN [Concomitant]
  4. HYDROMET (HOMATROPINE METHYLBROMIDE (+) HYDROCODONE BITARTRATE) [Concomitant]
  5. ETODOLAC [Concomitant]
  6. RAMIPRIL [Concomitant]
  7. SIMVASTATIN [Concomitant]

REACTIONS (9)
  - Chest discomfort [Not Recovered/Not Resolved]
  - Anxiety [Not Recovered/Not Resolved]
  - Insomnia [Not Recovered/Not Resolved]
  - Tremor [Not Recovered/Not Resolved]
  - Palpitations [Not Recovered/Not Resolved]
  - Drug dose omission [Unknown]
  - Incorrect route of drug administration [Unknown]
  - Wrong technique in drug usage process [Unknown]
  - Product taste abnormal [Unknown]
